FAERS Safety Report 9201983 (Version 3)
Quarter: 2014Q3

REPORT INFORMATION
  Report Type: Spontaneous
  Country: US (occurrence: US)
  Receive Date: 20130401
  Receipt Date: 20140827
  Transmission Date: 20150326
  Serious: Yes (Hospitalization, Other)
  Sender: FDA-Public Use
  Company Number: US-009507513-1303USA014409

PATIENT
  Sex: Female
  Weight: 74.83 kg

DRUGS (1)
  1. NUVARING [Suspect]
     Active Substance: ETHINYL ESTRADIOL\ETONOGESTREL
     Indication: MENORRHAGIA
     Dosage: UNK
     Route: 067
     Dates: start: 201010, end: 201109

REACTIONS (7)
  - Asthma [Unknown]
  - Iron deficiency anaemia [Unknown]
  - Pulmonary embolism [Unknown]
  - Leukocytosis [Unknown]
  - Off label use [Unknown]
  - Microcytic anaemia [Unknown]
  - Anxiety [Unknown]

NARRATIVE: CASE EVENT DATE: 201010
